FAERS Safety Report 15711388 (Version 5)
Quarter: 2019Q3

REPORT INFORMATION
  Report Type: Report from Study
  Country: US (occurrence: US)
  Receive Date: 20181211
  Receipt Date: 20190807
  Transmission Date: 20191004
  Serious: Yes (Other)
  Sender: FDA-Public Use
  Company Number: PHEH2018US051470

PATIENT
  Sex: Male

DRUGS (1)
  1. GLEEVEC [Suspect]
     Active Substance: IMATINIB MESYLATE
     Indication: PRODUCT USED FOR UNKNOWN INDICATION
     Dosage: 400 MG, UNK
     Route: 065

REACTIONS (11)
  - Immunosuppression [Unknown]
  - Recurrent cancer [Unknown]
  - Back pain [Unknown]
  - Hypokinesia [Unknown]
  - Pain [Recovered/Resolved]
  - Gastrointestinal stromal tumour [Unknown]
  - Muscle disorder [Unknown]
  - Pain in extremity [Unknown]
  - Vocal cord dysfunction [Unknown]
  - Insomnia [Unknown]
  - Neoplasm malignant [Unknown]
